FAERS Safety Report 9316226 (Version 7)
Quarter: 2013Q4

REPORT INFORMATION
  Report Type: Report from Study
  Country: BR (occurrence: BR)
  Receive Date: 20130530
  Receipt Date: 20131213
  Transmission Date: 20140711
  Serious: Yes (Life-Threatening, Hospitalization, Other)
  Sender: FDA-Public Use
  Company Number: PHHY2013BR036960

PATIENT
  Age: 70 Year
  Sex: Male

DRUGS (4)
  1. FORASEQ [Suspect]
     Indication: BRONCHITIS
     Dosage: 2 TO 3 DF, DAILY OF TREATMENT 1 AND TREATMENT 2
     Dates: start: 2002
  2. FORASEQ [Suspect]
     Indication: DYSPNOEA
     Dosage: 2 DF, BID
     Dates: start: 2006
  3. FORASEQ [Suspect]
     Dosage: 2 DF, TID
     Dates: start: 2006
  4. TEGRETARD [Concomitant]
     Dosage: 1 DF, QD
     Route: 048
     Dates: start: 201301

REACTIONS (10)
  - Suicidal ideation [Recovered/Resolved]
  - Dyspnoea [Not Recovered/Not Resolved]
  - Foot fracture [Not Recovered/Not Resolved]
  - Pain in extremity [Not Recovered/Not Resolved]
  - Abasia [Not Recovered/Not Resolved]
  - Musculoskeletal chest pain [Not Recovered/Not Resolved]
  - Panic disorder [Not Recovered/Not Resolved]
  - Constipation [Not Recovered/Not Resolved]
  - Drug resistance [Not Recovered/Not Resolved]
  - Somnolence [Recovered/Resolved]
